FAERS Safety Report 10561567 (Version 1)
Quarter: 2014Q4

REPORT INFORMATION
  Report Type: Spontaneous
  Country: SE (occurrence: SE)
  Receive Date: 20141103
  Receipt Date: 20141103
  Transmission Date: 20150529
  Serious: Yes (Other)
  Sender: FDA-Public Use
  Company Number: ALCN2014SE006077

PATIENT
  Age: 31 Year
  Sex: Male

DRUGS (1)
  1. MAXIDEX [Suspect]
     Active Substance: DEXAMETHASONE
     Dosage: UNK
     Route: 047

REACTIONS (2)
  - Visual impairment [Unknown]
  - Keratitis [Unknown]
